FAERS Safety Report 4288907-X (Version None)
Quarter: 2004Q1

REPORT INFORMATION
  Report Type: 
  Country: None (occurrence: None)
  Receive Date: 20040209
  Receipt Date: 20040209
  Transmission Date: 20041129
  Serious: Yes (Other)
  Sender: FDA-Public Use
  Company Number: None

PATIENT
  Sex: Female
  Weight: 95.2554 kg

DRUGS (2)
  1. LEVAQUIN [Suspect]
     Indication: LABYRINTHITIS
     Dosage: 500 MG ONE TIME A
     Dates: start: 20040130, end: 20040207
  2. LEVAQUIN [Suspect]
     Indication: MASTOIDITIS
     Dosage: 500 MG ONE TIME A
     Dates: start: 20040130, end: 20040207

REACTIONS (14)
  - AGEUSIA [None]
  - ANXIETY [None]
  - CHILLS [None]
  - CONSTIPATION [None]
  - DEPRESSION [None]
  - DRY MOUTH [None]
  - DRY THROAT [None]
  - DYSGEUSIA [None]
  - DYSPHAGIA [None]
  - HYPERHIDROSIS [None]
  - IRRITABILITY [None]
  - NIGHTMARE [None]
  - PAIN IN EXTREMITY [None]
  - SLEEP DISORDER [None]
